FAERS Safety Report 6055839-6 (Version None)
Quarter: 2009Q1

REPORT INFORMATION
  Report Type: 
  Country: None (occurrence: None)
  Receive Date: 20090128
  Receipt Date: 20090116
  Transmission Date: 20090719
  Serious: Yes (Death)
  Sender: FDA-Public Use
  Company Number: US-BAYER-200910190GPV

PATIENT
  Age: 57 Year
  Sex: Male

DRUGS (7)
  1. BACLOFEN [Suspect]
     Route: 048
  2. ASPIRIN [Suspect]
     Route: 048
  3. DIAZEPAM [Suspect]
     Route: 048
  4. OXYCODONE AND ASPIRIN [Suspect]
     Route: 048
  5. GABAPENTIN [Suspect]
     Route: 048
  6. OXYBUTYNIN [Suspect]
     Route: 048
  7. UNKNOWN LAXATIVE [Suspect]
     Route: 048

REACTIONS (1)
  - COMPLETED SUICIDE [None]
